FAERS Safety Report 25032456 (Version 1)
Quarter: 2025Q1

REPORT INFORMATION
  Report Type: Report from Study
  Country: US (occurrence: US)
  Receive Date: 20250303
  Receipt Date: 20250303
  Transmission Date: 20250408
  Serious: Yes (Other)
  Sender: UCB
  Company Number: US-UCBSA-2025011460

PATIENT
  Sex: Male
  Weight: 30.4 kg

DRUGS (1)
  1. FINTEPLA [Suspect]
     Active Substance: FENFLURAMINE
     Indication: Severe myoclonic epilepsy of infancy
     Dosage: 2.4 MILLILITER, 2X/DAY (BID)
     Dates: start: 20241115, end: 202502

REACTIONS (1)
  - Seizure [Not Recovered/Not Resolved]
